FAERS Safety Report 5499313-4 (Version None)
Quarter: 2007Q4

REPORT INFORMATION
  Report Type: 
  Country: None (occurrence: None)
  Receive Date: 20071026
  Receipt Date: 20071022
  Transmission Date: 20080405
  Serious: Yes (Other)
  Sender: FDA-Public Use
  Company Number: B0492639A

PATIENT
  Sex: Female

DRUGS (1)
  1. NIQUITIN CQ LOZENGE [Suspect]
     Route: 048

REACTIONS (1)
  - DEPENDENCE [None]
